FAERS Safety Report 6136410-4 (Version None)
Quarter: 2009Q1

REPORT INFORMATION
  Report Type: 
  Country: None (occurrence: None)
  Receive Date: 20090330
  Receipt Date: 20090320
  Transmission Date: 20090719
  Serious: Yes (Other)
  Sender: FDA-Public Use
  Company Number: US-ABBOTT-09P-163-0563801-00

PATIENT
  Sex: Female
  Weight: 68.1 kg

DRUGS (3)
  1. HUMIRA [Suspect]
     Indication: PSORIATIC ARTHROPATHY
     Route: 058
     Dates: start: 20040501, end: 20050101
  2. HUMIRA [Suspect]
     Route: 058
     Dates: start: 20050101, end: 20080701
  3. HUMIRA [Suspect]
     Route: 058
     Dates: start: 20090101

REACTIONS (2)
  - ARTHRALGIA [None]
  - CERVICAL INCOMPETENCE [None]
